FAERS Safety Report 10056533 (Version 1)
Quarter: 2014Q2

REPORT INFORMATION
  Report Type: Report from Study
  Country: BR (occurrence: BR)
  Receive Date: 20140403
  Receipt Date: 20140403
  Transmission Date: 20141212
  Serious: Yes (Hospitalization, Other)
  Sender: FDA-Public Use
  Company Number: PHHY2014BR039695

PATIENT
  Sex: Male

DRUGS (4)
  1. GALVUS MET [Suspect]
     Indication: BLOOD GLUCOSE INCREASED
     Dosage: 2 DF (METF 850MG, VILD 50MG) 1 IN THE MORNING AND 1 AT NIGHT
     Route: 048
  2. DIOVAN AMLO FIX [Suspect]
     Indication: HYPERTENSION
     Dosage: 1 DF (160/5MG) IN THE MORNING
     Route: 048
  3. ATENSINE [Concomitant]
     Indication: BLOOD PRESSURE ABNORMAL
     Dosage: UNK UKN, UNK
  4. HYDROCHLOROTHIAZIDE [Concomitant]
     Indication: BLOOD PRESSURE ABNORMAL
     Dosage: UNK UKN, UNK

REACTIONS (2)
  - Thrombosis [Unknown]
  - Pain in extremity [Unknown]
